FAERS Safety Report 13991271 (Version 1)
Quarter: 2017Q3

REPORT INFORMATION
  Report Type: Spontaneous
  Country: US (occurrence: US)
  Receive Date: 20170920
  Receipt Date: 20170920
  Transmission Date: 20171128
  Serious: No
  Sender: FDA-Public Use
  Company Number: US-CELGENEUS-USA-20170904953

PATIENT
  Age: 57 Year
  Sex: Female

DRUGS (1)
  1. OTEZLA [Suspect]
     Active Substance: APREMILAST
     Indication: PSORIASIS
     Dosage: 10MG,20MG,30 MILLIGRAM (STARTER PACK)
     Route: 048
     Dates: start: 20170918

REACTIONS (2)
  - Tongue disorder [Unknown]
  - Dry mouth [Unknown]

NARRATIVE: CASE EVENT DATE: 20170918
